FAERS Safety Report 5877151-8 (Version None)
Quarter: 2008Q3

REPORT INFORMATION
  Report Type: 
  Country: None (occurrence: None)
  Receive Date: 20080910
  Receipt Date: 20080904
  Transmission Date: 20090109
  Serious: Yes (Hospitalization)
  Sender: FDA-Public Use
  Company Number: US-B.I. PHARMACEUTICALS,INC./RIDGEFIELD-2008-BP-13719BP

PATIENT
  Age: 81 Year
  Sex: Female

DRUGS (3)
  1. SPIRIVA [Suspect]
     Indication: PULMONARY MASS
     Dosage: 18MCG
     Route: 055
     Dates: start: 20060201
  2. PREVACID [Concomitant]
     Indication: OESOPHAGITIS
     Dates: start: 20000101
  3. METOPROLOL SUCCINATE [Concomitant]
     Indication: HYPERTENSION
     Dates: start: 20060101

REACTIONS (4)
  - ABSCESS [None]
  - DECREASED APPETITE [None]
  - INTESTINAL FUNCTIONAL DISORDER [None]
  - MUSCULOSKELETAL DISORDER [None]
